FAERS Safety Report 24240948 (Version 1)
Quarter: 2024Q3

REPORT INFORMATION
  Report Type: Spontaneous
  Country: US (occurrence: US)
  Receive Date: 20240823
  Receipt Date: 20240823
  Transmission Date: 20241017
  Serious: Yes (Death, Other)
  Sender: BRISTOL MYERS SQUIBB
  Company Number: US-BRISTOL-MYERS SQUIBB COMPANY-2024-133555

PATIENT
  Age: 83 Year
  Sex: Female

DRUGS (22)
  1. REVLIMID [Suspect]
     Active Substance: LENALIDOMIDE
     Indication: Plasma cell myeloma
     Route: 048
     Dates: start: 20201203, end: 20240819
  2. LINZESS [Concomitant]
     Active Substance: LINACLOTIDE
  3. NINLARO [Concomitant]
     Active Substance: IXAZOMIB CITRATE
  4. ONDANSETRON [Concomitant]
     Active Substance: ONDANSETRON
  5. ISOSORBIDE DINITRATE [Concomitant]
     Active Substance: ISOSORBIDE DINITRATE
  6. XGEVA [Concomitant]
     Active Substance: DENOSUMAB
     Dosage: 120MG/1.7ML INJ, 1.7ML
  7. ACYCLOVIR [Concomitant]
     Active Substance: ACYCLOVIR
  8. DEXAMETHASONE [Concomitant]
     Active Substance: DEXAMETHASONE
  9. LORAZEPAM [Concomitant]
     Active Substance: LORAZEPAM
  10. HYDROMORPHONE [Concomitant]
     Active Substance: HYDROMORPHONE
  11. VITAMIN B12 [Concomitant]
     Active Substance: CYANOCOBALAMIN
  12. ASPIRIN [Concomitant]
     Active Substance: ASPIRIN
     Dosage: LOW DOSE
  13. BIOTIN [Concomitant]
     Active Substance: BIOTIN
  14. CALCIUM\VITAMIN D [Concomitant]
     Active Substance: CALCIUM\VITAMIN D
  15. CLARITHROMYCIN [Concomitant]
     Active Substance: CLARITHROMYCIN
  16. CRESTOR [Concomitant]
     Active Substance: ROSUVASTATIN CALCIUM
  17. FISH OIL [Concomitant]
     Active Substance: FISH OIL
  18. METOPROLOL TARTRATE [Concomitant]
     Active Substance: METOPROLOL TARTRATE
  19. NARCAN [Concomitant]
     Active Substance: NALOXONE HYDROCHLORIDE
     Dosage: 4MG/0.1ML 2 PACKONE A DAY
  20. SPIRONOLACTONE [Concomitant]
     Active Substance: SPIRONOLACTONE
  21. THERATEARS [Concomitant]
     Active Substance: CARBOXYMETHYLCELLULOSE SODIUM
  22. TYLENOL [Concomitant]
     Active Substance: ACETAMINOPHEN
     Dosage: TYLENOL 500MG E/S (ACETAMINOPHEN) T

REACTIONS (1)
  - Death [Fatal]

NARRATIVE: CASE EVENT DATE: 20240819
